FAERS Safety Report 7311100-0 (Version None)
Quarter: 2011Q1

REPORT INFORMATION
  Report Type: 
  Country: None (occurrence: None)
  Receive Date: 20110224
  Receipt Date: 20110129
  Transmission Date: 20110831
  Serious: No
  Sender: FDA-Public Use
  Company Number: US-B.I. PHARMACEUTICALS,INC./RIDGEFIELD-2011-BP-03086BP

PATIENT
  Age: 68 Year
  Sex: Male

DRUGS (9)
  1. HYDROCODONE [Concomitant]
     Indication: PAIN
  2. HYDROCODONE [Concomitant]
     Indication: ARTHRITIS
  3. CARVEDILOL [Concomitant]
     Indication: CARDIAC FAILURE CONGESTIVE
  4. ALPRAZOLAM [Concomitant]
     Indication: ANXIETY
     Dates: start: 20040101
  5. FLOMAX [Concomitant]
     Indication: FLUID RETENTION
  6. PRADAXA [Suspect]
     Indication: ATRIAL FIBRILLATION
     Dosage: 300 MG
     Route: 048
     Dates: start: 20110114
  7. XALATAN SOL 0.005% [Concomitant]
     Indication: CATARACT
     Route: 031
     Dates: start: 20060101
  8. CITALOPRAM [Concomitant]
     Indication: DEPRESSION
     Dosage: 20 MG
     Dates: start: 20000101
  9. UNSPECIFIED SLEEPING PILL [Concomitant]
     Indication: SLEEP DISORDER
     Dates: start: 20040101

REACTIONS (5)
  - DIARRHOEA [None]
  - HEADACHE [None]
  - DYSPEPSIA [None]
  - PAIN [None]
  - ERUCTATION [None]
